FAERS Safety Report 4569427-1 (Version None)
Quarter: 2005Q1

REPORT INFORMATION
  Report Type: 
  Country: None (occurrence: None)
  Receive Date: 20050201
  Receipt Date: 20050120
  Transmission Date: 20050727
  Serious: No
  Sender: FDA-Public Use
  Company Number: 2004102455

PATIENT
  Sex: Male

DRUGS (1)
  1. XALATAN [Suspect]
     Indication: OPEN ANGLE GLAUCOMA
     Dosage: OPHTHALMIC
     Route: 047

REACTIONS (1)
  - NO ADVERSE DRUG EFFECT [None]
